FAERS Safety Report 9039074 (Version 1)
Quarter: 2013Q1

REPORT INFORMATION
  Report Type: Report from Study
  Country: US (occurrence: US)
  Receive Date: 20130129
  Receipt Date: 20130129
  Transmission Date: 20140127
  Serious: No
  Sender: FDA-Public Use
  Company Number: US-ABBOTT-12P-163-0931187-00

PATIENT
  Age: 44 Year
  Sex: Male
  Weight: 86.26 kg

DRUGS (6)
  1. HUMIRA 40 MG/0.8 ML PEN [Suspect]
     Indication: PSORIASIS
     Route: 058
     Dates: start: 20120419, end: 20120419
  2. HUMIRA 40 MG/0.8 ML PEN [Suspect]
     Route: 058
     Dates: start: 20120426
  3. METFORMIN [Concomitant]
     Indication: TYPE 2 DIABETES MELLITUS
     Route: 048
  4. FENOFIBRATE [Concomitant]
     Indication: BLOOD TRIGLYCERIDES INCREASED
     Route: 048
  5. BABY ASPIRIN [Concomitant]
     Indication: CARDIAC DISORDER
     Route: 048
  6. PRAVASTATIN [Concomitant]
     Indication: BLOOD TRIGLYCERIDES INCREASED
     Route: 048

REACTIONS (2)
  - Feeling hot [Recovered/Resolved]
  - Injection site bruising [Not Recovered/Not Resolved]
